FAERS Safety Report 5861456-0 (Version None)
Quarter: 2008Q3

REPORT INFORMATION
  Report Type: 
  Country: None (occurrence: None)
  Receive Date: 20080827
  Receipt Date: 20080514
  Transmission Date: 20090109
  Serious: No
  Sender: FDA-Public Use
  Company Number: US-ABBOTT-08P-163-0451600-00

PATIENT
  Sex: Male

DRUGS (2)
  1. NIASPAN [Suspect]
     Indication: BLOOD CHOLESTEROL INCREASED
     Route: 048
     Dates: start: 20080508, end: 20080512
  2. NIASPAN [Suspect]
     Route: 048
     Dates: start: 20080513

REACTIONS (2)
  - FEELING HOT [None]
  - SKIN BURNING SENSATION [None]
